FAERS Safety Report 7224995-6 (Version None)
Quarter: 2011Q1

REPORT INFORMATION
  Report Type: 
  Country: None (occurrence: None)
  Receive Date: 20110107
  Receipt Date: 20110107
  Transmission Date: 20110831
  Serious: Yes (Other)
  Sender: FDA-Public Use
  Company Number: None

PATIENT
  Age: 19 Year
  Sex: Female

DRUGS (2)
  1. RISPERDONE [Suspect]
     Dosage: 4 MG QHS PO
     Route: 048
     Dates: start: 20101130, end: 20101202
  2. RISPERDONE [Suspect]
     Dosage: 2 MG QAM PO
     Route: 048
     Dates: start: 20101123, end: 20101202

REACTIONS (2)
  - MUSCULOSKELETAL STIFFNESS [None]
  - DROOLING [None]
